FAERS Safety Report 9704812 (Version 1)
Quarter: 2013Q4

REPORT INFORMATION
  Report Type: Spontaneous
  Country: IT (occurrence: IT)
  Receive Date: 20131122
  Receipt Date: 20131122
  Transmission Date: 20140711
  Serious: Yes (Other)
  Sender: FDA-Public Use
  Company Number: IT-B.I. PHARMACEUTICALS,INC./RIDGEFIELD-2013-BI-37900IT

PATIENT
  Age: 45 Year
  Sex: Male

DRUGS (1)
  1. MIRAPEXIN [Suspect]
     Indication: RESTLESS LEGS SYNDROME
     Dosage: 0.7 MG
     Dates: start: 20131103, end: 20131103

REACTIONS (5)
  - Abdominal pain [Recovered/Resolved]
  - Muscular weakness [Recovered/Resolved]
  - Nausea [Recovered/Resolved]
  - Presyncope [Recovered/Resolved]
  - Vomiting [Recovered/Resolved]
